APPROVED DRUG PRODUCT: SEVOFLURANE
Active Ingredient: SEVOFLURANE
Strength: 100%
Dosage Form/Route: LIQUID;INHALATION
Application: A078650 | Product #001 | TE Code: AN
Applicant: HALOCARBON PRODUCTS CORP
Approved: Nov 19, 2007 | RLD: No | RS: No | Type: RX